FAERS Safety Report 6068274-1 (Version None)
Quarter: 2009Q1

REPORT INFORMATION
  Report Type: 
  Country: None (occurrence: None)
  Receive Date: 20090206
  Receipt Date: 20090127
  Transmission Date: 20090719
  Serious: Yes (Other)
  Sender: FDA-Public Use
  Company Number: PHHY2009FR01968

PATIENT
  Sex: Male

DRUGS (5)
  1. ACLASTA [Suspect]
     Indication: OSTEITIS DEFORMANS
     Dosage: UNK
     Dates: start: 20080701
  2. LEVOTHYROX [Concomitant]
     Indication: HYPOTHYROIDISM
     Dosage: 75 UG
     Dates: start: 20050101
  3. VASTAREL [Concomitant]
     Dosage: UNK
     Dates: start: 20040101
  4. STRUCTUM [Concomitant]
     Dosage: UNK
     Dates: start: 20010101
  5. DEBRIDAT [Concomitant]
     Dosage: UNK
     Dates: start: 20060101

REACTIONS (5)
  - ASTHENIA [None]
  - LOSS OF CONSCIOUSNESS [None]
  - MALAISE [None]
  - MONOPARESIS [None]
  - PYREXIA [None]
